FAERS Safety Report 10172902 (Version 3)
Quarter: 2014Q2

REPORT INFORMATION
  Report Type: Report from Study
  Country: CA (occurrence: CA)
  Receive Date: 20140515
  Receipt Date: 20140519
  Transmission Date: 20141212
  Serious: Yes (Other)
  Sender: FDA-Public Use
  Company Number: CA-ROCHE-1163587

PATIENT
  Age: 55 Year
  Sex: Male
  Weight: 84.9 kg

DRUGS (10)
  1. RITUXIMAB [Suspect]
     Indication: PEMPHIGUS
     Dosage: FREQUENCY REPORTED AS: DAY 1 AND DAY 15?PREVIOUS DOSE 11-DEC-2012
     Route: 042
     Dates: start: 20121127
  2. CORTISONE [Concomitant]
  3. ASA (ACETYLSALICYLIC ACID) [Concomitant]
     Route: 065
  4. CRESTOR [Concomitant]
  5. VITAMIN B6 [Concomitant]
  6. VITAMIN B12 [Concomitant]
  7. DIPHENHYDRAMINE HCL [Concomitant]
     Indication: PREMEDICATION
     Route: 048
     Dates: start: 20121127
  8. ACETAMINOPHEN [Concomitant]
     Indication: PREMEDICATION
     Route: 048
     Dates: start: 20121127
  9. METHYLPREDNISOLONE [Concomitant]
     Indication: PREMEDICATION
     Route: 042
     Dates: start: 20121127
  10. XARELTO [Concomitant]

REACTIONS (6)
  - Embolism [Not Recovered/Not Resolved]
  - Pemphigus [Unknown]
  - Cough [Recovering/Resolving]
  - Diarrhoea [Recovered/Resolved]
  - Off label use [Unknown]
  - Pneumonia [Unknown]
